FAERS Safety Report 9938680 (Version 1)
Quarter: 2014Q1

REPORT INFORMATION
  Report Type: Report from Study
  Country: CA (occurrence: CA)
  Receive Date: 20140303
  Receipt Date: 20140303
  Transmission Date: 20141002
  Serious: Yes (Other)
  Sender: FDA-Public Use
  Company Number: CA-JNJFOC-20140212545

PATIENT
  Age: 25 Year
  Sex: Female

DRUGS (3)
  1. STELARA [Suspect]
     Indication: CROHN^S DISEASE
     Route: 058
     Dates: start: 20131122
  2. 6MP [Concomitant]
     Route: 048
  3. 6MP [Concomitant]
     Route: 048

REACTIONS (3)
  - Hepatitis viral [Not Recovered/Not Resolved]
  - Crohn^s disease [Unknown]
  - Off label use [Unknown]
